FAERS Safety Report 10184889 (Version 2)
Quarter: 2014Q2

REPORT INFORMATION
  Report Type: Spontaneous
  Country: PL (occurrence: PL)
  Receive Date: 20140521
  Receipt Date: 20140610
  Transmission Date: 20141212
  Serious: Yes (Disabling, Other)
  Sender: FDA-Public Use
  Company Number: PL-ROCHE-1404652

PATIENT
  Age: 55 Year
  Sex: Female
  Weight: 52 kg

DRUGS (2)
  1. ZELBORAF [Suspect]
     Indication: METASTATIC MALIGNANT MELANOMA
     Dosage: 2X960MG
     Route: 048
     Dates: start: 20140311, end: 20140411
  2. DEXAMETHASONE [Concomitant]
     Indication: METASTASES TO CENTRAL NERVOUS SYSTEM
     Dosage: 2X2 MG
     Route: 048
     Dates: start: 20140202

REACTIONS (3)
  - Rash [Recovering/Resolving]
  - Skin exfoliation [Recovering/Resolving]
  - Abnormal behaviour [Not Recovered/Not Resolved]
